FAERS Safety Report 23981619 (Version 1)
Quarter: 2024Q2

REPORT INFORMATION
  Report Type: Spontaneous
  Country: US (occurrence: None)
  Receive Date: 20240615
  Receipt Date: 20240615
  Transmission Date: 20240716
  Serious: Yes (Death, Hospitalization)
  Sender: FDA-Public Use
  Company Number: None

PATIENT
  Age: 75 Year
  Sex: Male
  Weight: 109.4 kg

DRUGS (2)
  1. TAXOTERE [Suspect]
     Active Substance: DOCETAXEL
     Dates: end: 20240523
  2. GEMCITABINE HYDROCHLORIDE [Suspect]
     Active Substance: GEMCITABINE HYDROCHLORIDE
     Dates: end: 20240523

REACTIONS (6)
  - Ventricular tachycardia [None]
  - Troponin T increased [None]
  - Toxicity to various agents [None]
  - Ventricular extrasystoles [None]
  - Sinus bradycardia [None]
  - Coronary artery stenosis [None]

NARRATIVE: CASE EVENT DATE: 20240603
